FAERS Safety Report 5331776-7 (Version None)
Quarter: 2007Q2

REPORT INFORMATION
  Report Type: 
  Country: None (occurrence: None)
  Receive Date: 20070517
  Receipt Date: 20070509
  Transmission Date: 20071010
  Serious: Yes (Hospitalization)
  Sender: FDA-Public Use
  Company Number: PRI050412007009

PATIENT
  Age: 73 Year
  Sex: Male
  Weight: 70.3075 kg

DRUGS (5)
  1. BEVACIZUMAB (GENENTECH) [Suspect]
     Indication: COLON CANCER METASTATIC
     Dosage: 5 MG/KG IV Q 2 WEEKS
     Route: 042
     Dates: start: 20061018, end: 20070119
  2. FLUOROURACIL [Concomitant]
  3. LEUCOVORIN CALCIUM [Concomitant]
  4. CETUXIMAB [Concomitant]
  5. PERCOCET [Concomitant]

REACTIONS (6)
  - ABDOMINAL ADHESIONS [None]
  - BLOOD PRESSURE DECREASED [None]
  - CHEST PAIN [None]
  - ODYNOPHAGIA [None]
  - PNEUMATOSIS INTESTINALIS [None]
  - WHITE BLOOD CELL COUNT DECREASED [None]
